FAERS Safety Report 7471322-5 (Version None)
Quarter: 2011Q2

REPORT INFORMATION
  Report Type: 
  Country: None (occurrence: None)
  Receive Date: 20110510
  Receipt Date: 20110427
  Transmission Date: 20111010
  Serious: Yes (Life-Threatening, Hospitalization, Disabling, Other)
  Sender: FDA-Public Use
  Company Number: DE-AMGEN-DEUSP2011002521

PATIENT
  Age: 61 Year
  Sex: Female
  Weight: 80 kg

DRUGS (8)
  1. ENBREL [Suspect]
     Indication: PSORIATIC ARTHROPATHY
     Dosage: 50 MG, WEEKLY
     Route: 058
     Dates: start: 20071211, end: 20100726
  2. ENBREL [Suspect]
     Indication: RHEUMATOID ARTHRITIS
  3. PREDNISOLONE [Concomitant]
     Indication: PSORIATIC ARTHROPATHY
     Dosage: UNK
     Route: 048
     Dates: start: 20030601
  4. LEVOTHYROXINE SODIUM [Concomitant]
     Dosage: 50 UG, 1X/DAY
  5. ESTRADIOL [Concomitant]
     Dosage: 2 MG, 1X/DAY
  6. PROTAPHAN                          /01322201/ [Concomitant]
     Dosage: 24 IU BY NIGHT EVERY DAY
  7. ACTRAPID                           /00030501/ [Concomitant]
     Dosage: 24 IU AT 7AM, 20IU AT 11AM, 20IU AT 05:30PM EVERY DAY
  8. METEX                              /00113802/ [Concomitant]
     Indication: PSORIATIC ARTHROPATHY
     Dosage: 20 MG, WEEKLY
     Route: 058
     Dates: start: 20020822, end: 20100823

REACTIONS (13)
  - HEPATIC STEATOSIS [None]
  - LEFT VENTRICULAR HYPERTROPHY [None]
  - LUNG DISORDER [None]
  - SUPERIOR VENA CAVA SYNDROME [None]
  - PSYCHIATRIC DECOMPENSATION [None]
  - NERVOUS SYSTEM DISORDER [None]
  - HODGKIN'S DISEASE STAGE III [None]
  - HAEMANGIOMA OF LIVER [None]
  - CEREBELLAR HYPOPLASIA [None]
  - OEDEMA PERIPHERAL [None]
  - DEPRESSIVE SYMPTOM [None]
  - LEFT ATRIAL DILATATION [None]
  - PULMONARY FIBROSIS [None]
